FAERS Safety Report 16241219 (Version 3)
Quarter: 2019Q2

REPORT INFORMATION
  Report Type: Report from Study
  Country: None (occurrence: US)
  Receive Date: 20190425
  Receipt Date: 20190523
  Transmission Date: 20190711
  Serious: Yes (Hospitalization, Other)
  Sender: FDA-Public Use
  Company Number: US-ABBVIE-17K-163-1905433-00

PATIENT
  Sex: Male
  Weight: 90.35 kg

DRUGS (4)
  1. HUMIRA [Suspect]
     Active Substance: ADALIMUMAB
     Indication: RHEUMATOID ARTHRITIS
     Route: 058
     Dates: start: 2009, end: 2019
  2. HUMIRA [Suspect]
     Active Substance: ADALIMUMAB
     Indication: PSORIATIC ARTHROPATHY
     Route: 058
     Dates: start: 2008, end: 2009
  3. SEROQUEL [Concomitant]
     Active Substance: QUETIAPINE FUMARATE
     Indication: SLEEP DISORDER
  4. SEROQUEL [Concomitant]
     Active Substance: QUETIAPINE FUMARATE
     Indication: DEPRESSION

REACTIONS (25)
  - Concussion [Recovering/Resolving]
  - Nerve injury [Recovering/Resolving]
  - Head injury [Not Recovered/Not Resolved]
  - Neuropathy peripheral [Unknown]
  - Muscle spasms [Unknown]
  - Fall [Recovered/Resolved]
  - Concussion [Recovered/Resolved with Sequelae]
  - Arthralgia [Recovered/Resolved]
  - Mobility decreased [Recovering/Resolving]
  - Pain in extremity [Recovering/Resolving]
  - Depression [Not Recovered/Not Resolved]
  - Joint injury [Recovering/Resolving]
  - Surgery [Unknown]
  - Joint instability [Recovering/Resolving]
  - Drug ineffective [Recovered/Resolved]
  - Gait inability [Recovering/Resolving]
  - Head injury [Recovering/Resolving]
  - Limb injury [Not Recovered/Not Resolved]
  - Gait disturbance [Unknown]
  - Amnesia [Not Recovered/Not Resolved]
  - Memory impairment [Not Recovered/Not Resolved]
  - Dysstasia [Recovering/Resolving]
  - Panic attack [Recovered/Resolved]
  - Loss of consciousness [Unknown]
  - Fall [Not Recovered/Not Resolved]

NARRATIVE: CASE EVENT DATE: 2015
